FAERS Safety Report 7241538-1 (Version None)
Quarter: 2011Q1

REPORT INFORMATION
  Report Type: 
  Country: None (occurrence: None)
  Receive Date: 20110124
  Receipt Date: 20110110
  Transmission Date: 20110831
  Serious: Yes (Death)
  Sender: FDA-Public Use
  Company Number: HK-WATSON-2011-00412

PATIENT
  Age: 57 Year
  Sex: Female

DRUGS (1)
  1. AFEDITAB CR [Suspect]
     Indication: PRODUCT USED FOR UNKNOWN INDICATION
     Dosage: UNK
     Route: 048

REACTIONS (3)
  - OVERDOSE [None]
  - INTESTINAL ISCHAEMIA [None]
  - HYPOTENSION [None]
